FAERS Safety Report 8196446-9 (Version None)
Quarter: 2012Q1

REPORT INFORMATION
  Report Type: 
  Country: None (occurrence: None)
  Receive Date: 20120307
  Receipt Date: 20120307
  Transmission Date: 20120608
  Serious: Yes (Other)
  Sender: FDA-Public Use
  Company Number: None

PATIENT
  Age: 58 Year
  Sex: Female

DRUGS (10)
  1. OMEPRAZOLE [Concomitant]
  2. ASPIRIN [Concomitant]
  3. CETIRIZINE [Concomitant]
  4. FLUTICASONE PROPIONATE [Concomitant]
  5. ACYCLOVIR [Concomitant]
  6. BUPROPION HCL [Concomitant]
  7. LORAZEPAM [Concomitant]
  8. REVLIMID [Suspect]
     Indication: MULTIPLE MYELOMA
     Dosage: REVLIMID 10 MG DAILY X21D/28D ORALLY
     Route: 048
     Dates: start: 20110401, end: 20110701
  9. REVLIMID [Suspect]
     Indication: MULTIPLE MYELOMA
     Dosage: REVLIMID 10 MG DAILY X21D/28D ORALLY
     Route: 048
     Dates: start: 20120101
  10. FILGRASTIM [Concomitant]

REACTIONS (1)
  - NEUTROPENIA [None]
